FAERS Safety Report 7386935-9 (Version None)
Quarter: 2011Q1

REPORT INFORMATION
  Report Type: 
  Country: None (occurrence: None)
  Receive Date: 20110331
  Receipt Date: 20110318
  Transmission Date: 20110831
  Serious: Yes (Death, Hospitalization)
  Sender: FDA-Public Use
  Company Number: US-CELGENEUS-163-21880-10111333

PATIENT
  Sex: Male

DRUGS (6)
  1. REVLIMID [Suspect]
     Indication: MULTIPLE MYELOMA
     Dosage: 5 MILLIGRAM
     Route: 048
     Dates: start: 20100616, end: 20100801
  2. DEXAMETHASONE [Concomitant]
     Route: 065
     Dates: start: 20100616
  3. LORTAB [Concomitant]
     Indication: PAIN
     Route: 065
     Dates: start: 20100618
  4. DIOVAN [Concomitant]
     Indication: HYPERTENSION
     Route: 065
  5. MIRALAX [Concomitant]
     Indication: CONSTIPATION
     Route: 065
  6. ARIXTRA [Concomitant]
     Route: 065
     Dates: start: 20090901

REACTIONS (3)
  - BLOOD CALCIUM INCREASED [None]
  - MULTIPLE MYELOMA [None]
  - COMPRESSION FRACTURE [None]
